FAERS Safety Report 21017477 (Version 1)
Quarter: 2022Q2

REPORT INFORMATION
  Report Type: Spontaneous
  Country: US (occurrence: US)
  Receive Date: 20220628
  Receipt Date: 20220628
  Transmission Date: 20220721
  Serious: Yes (Death, Other)
  Sender: FDA-Public Use
  Company Number: US-AMGEN-USASP2022108833

PATIENT
  Age: 16 Year
  Sex: Female

DRUGS (6)
  1. XGEVA [Suspect]
     Active Substance: DENOSUMAB
     Indication: Osteosarcoma
     Dosage: UNK
     Route: 065
  2. CARFILZOMIB [Suspect]
     Active Substance: CARFILZOMIB
     Indication: Product used for unknown indication
     Dosage: UNK
     Route: 065
  3. IFOSFAMIDE [Concomitant]
     Active Substance: IFOSFAMIDE
  4. MIFAMURTIDE [Concomitant]
     Active Substance: MIFAMURTIDE
  5. METHOTREXATE [Concomitant]
     Active Substance: METHOTREXATE
  6. DOXORUBICIN [Concomitant]
     Active Substance: DOXORUBICIN

REACTIONS (4)
  - Respiratory failure [Fatal]
  - Drug ineffective [Unknown]
  - Mucosal inflammation [Unknown]
  - Limb amputation [Unknown]
